FAERS Safety Report 10025265 (Version 1)
Quarter: 2014Q1

REPORT INFORMATION
  Report Type: Spontaneous
  Country: US (occurrence: None)
  Receive Date: 20140318
  Receipt Date: 20140318
  Transmission Date: 20141002
  Serious: Yes (Hospitalization, Other)
  Sender: FDA-Public Use
  Company Number: SYM-2014-18381

PATIENT
  Age: 64 Year
  Sex: Female
  Weight: 61.24 kg

DRUGS (8)
  1. CARDIZEM [Suspect]
     Indication: ATRIAL FIBRILLATION
  2. AMIODARONE [Suspect]
     Indication: ATRIAL FIBRILLATION
     Route: 042
     Dates: start: 20140118, end: 20140203
  3. PROPANOLOL ER [Concomitant]
  4. PRIMIDONE (PRIMIDONE) (PRIMIDONE) [Concomitant]
  5. PRAVASTATIN (PRAVASTATIN ) (PRAVASTATIN) [Concomitant]
  6. DEXILANT (DEXLANSOPRAZOLE) (DEXLANSOPRAZOLE) [Concomitant]
  7. ASPIRIN (ACETYLSALICYLIC ACID) (ACETYLSALICYLIC ACID) [Concomitant]
  8. AMBIEN (ZOLPIDEM TARTRATE) (ZOLPIDEM TARTRATE) [Concomitant]

REACTIONS (7)
  - Procedural complication [None]
  - Pericardial haemorrhage [None]
  - Pericarditis [None]
  - Asthenia [None]
  - Cough [None]
  - Wheezing [None]
  - Rash [None]
